FAERS Safety Report 12355486 (Version 1)
Quarter: 2016Q2

REPORT INFORMATION
  Report Type: Spontaneous
  Country: US (occurrence: US)
  Receive Date: 20160511
  Receipt Date: 20160511
  Transmission Date: 20160815
  Serious: Yes (Other)
  Sender: FDA-Public Use
  Company Number: US-BEH-2016062312

PATIENT
  Sex: Female
  Weight: 72 kg

DRUGS (19)
  1. NITROGLYCERIN. [Concomitant]
     Active Substance: NITROGLYCERIN
  2. PAROXETINE. [Concomitant]
     Active Substance: PAROXETINE
  3. DIPHENHYDRAMINE. [Concomitant]
     Active Substance: DIPHENHYDRAMINE
  4. SYMBICORT [Concomitant]
     Active Substance: BUDESONIDE\FORMOTEROL FUMARATE DIHYDRATE
  5. VITAMIN B12 [Concomitant]
     Active Substance: CYANOCOBALAMIN
  6. PREDNISONE. [Concomitant]
     Active Substance: PREDNISONE
  7. ATORVASTATIN [Concomitant]
     Active Substance: ATORVASTATIN
  8. BACTRIM DS [Concomitant]
     Active Substance: SULFAMETHOXAZOLE\TRIMETHOPRIM
  9. HIZENTRA [Suspect]
     Active Substance: HUMAN IMMUNOGLOBULIN G
     Indication: IMMUNODEFICIENCY COMMON VARIABLE
     Route: 058
  10. ASPIRIN  EC [Concomitant]
     Active Substance: ASPIRIN
  11. PROAIR HFA [Concomitant]
     Active Substance: ALBUTEROL SULFATE
  12. NAPROXEN. [Concomitant]
     Active Substance: NAPROXEN
  13. EPIPEN [Concomitant]
     Active Substance: EPINEPHRINE
  14. SINGULAIR [Concomitant]
     Active Substance: MONTELUKAST SODIUM
  15. PANTOPRAZOLE [Concomitant]
     Active Substance: PANTOPRAZOLE SODIUM
  16. DALIRESP [Concomitant]
     Active Substance: ROFLUMILAST
  17. ACETYLCYSTEINE. [Concomitant]
     Active Substance: ACETYLCYSTEINE
  18. AMLODIPINE [Concomitant]
     Active Substance: AMLODIPINE BESYLATE
  19. FLONASE [Concomitant]
     Active Substance: FLUTICASONE PROPIONATE

REACTIONS (2)
  - Sinusitis [Unknown]
  - Infection [Unknown]
